FAERS Safety Report 22175983 (Version 1)
Quarter: 2023Q2

REPORT INFORMATION
  Report Type: Spontaneous
  Country: US (occurrence: None)
  Receive Date: 20230403
  Receipt Date: 20230403
  Transmission Date: 20230722
  Serious: Yes (Life-Threatening)
  Sender: FDA-Public Use
  Company Number: None

PATIENT
  Age: 17 Day
  Sex: Male
  Weight: 4.8 kg

DRUGS (1)
  1. FENTANYL CITRATE [Suspect]
     Active Substance: FENTANYL CITRATE
     Dosage: FREQUENCY : AS NEEDED;?
     Route: 040

REACTIONS (1)
  - Hypoxia [None]

NARRATIVE: CASE EVENT DATE: 20230328
